FAERS Safety Report 21837228 (Version 1)
Quarter: 2023Q1

REPORT INFORMATION
  Report Type: Report from Study
  Country: US (occurrence: US)
  Receive Date: 20230109
  Receipt Date: 20230109
  Transmission Date: 20230418
  Serious: Yes (Hospitalization)
  Sender: FDA-Public Use
  Company Number: US-SERVIER-S22013358

PATIENT

DRUGS (9)
  1. PEGASPARGASE [Suspect]
     Active Substance: PEGASPARGASE
     Indication: Acute lymphocytic leukaemia
     Dosage: 3750 MG, ONE DOSE, D4 AND D43
     Route: 042
     Dates: start: 20221129
  2. CYCLOPHOSPHAMIDE [Suspect]
     Active Substance: CYCLOPHOSPHAMIDE
     Indication: Acute lymphocytic leukaemia
     Dosage: 1000 MG/M2 ON D29
     Route: 042
     Dates: start: 20221129
  3. CYTARABINE [Suspect]
     Active Substance: CYTARABINE
     Indication: Acute lymphocytic leukaemia
     Dosage: 75 MG/M2, ON DAYS 29-32, 36-39
     Route: 042
     Dates: start: 20221129
  4. DEXAMETHASONE [Suspect]
     Active Substance: DEXAMETHASONE
     Indication: Acute lymphocytic leukaemia
     Dosage: 5 MG ON DAYS 1-7 AND 15-21
     Route: 048
     Dates: start: 20221129
  5. DOXORUBICIN [Suspect]
     Active Substance: DOXORUBICIN
     Indication: Acute lymphocytic leukaemia
     Dosage: 25 MG/M2, ON D1, D8, D15
     Route: 042
     Dates: start: 20221129
  6. METHOTREXATE [Suspect]
     Active Substance: METHOTREXATE
     Indication: Acute lymphocytic leukaemia
     Dosage: 15 MG ON D1, D29, D36
     Route: 037
     Dates: start: 20221129
  7. THIOGUANINE [Suspect]
     Active Substance: THIOGUANINE
     Indication: Acute lymphocytic leukaemia
     Dosage: 60 MG, QD ON DAYS 29-42
     Route: 048
     Dates: start: 20221129
  8. VINCRISTINE SULFATE [Suspect]
     Active Substance: VINCRISTINE SULFATE
     Indication: Acute lymphocytic leukaemia
     Dosage: (1.5 MG/M2, MAXIMUM 2 MG ON D1, D8, D15, D43, AND D50
     Route: 042
     Dates: start: 20221129
  9. ACETAMINOPHEN [Concomitant]
     Active Substance: ACETAMINOPHEN
     Indication: Headache
     Dosage: UNK, QD
     Route: 065

REACTIONS (3)
  - Febrile neutropenia [Recovering/Resolving]
  - Pulmonary embolism [Recovering/Resolving]
  - Leukoencephalopathy [Recovering/Resolving]

NARRATIVE: CASE EVENT DATE: 20221208
